FAERS Safety Report 17258089 (Version 2)
Quarter: 2020Q1

REPORT INFORMATION
  Report Type: Spontaneous
  Country: JP (occurrence: JP)
  Receive Date: 20200110
  Receipt Date: 20200121
  Transmission Date: 20200409
  Serious: Yes (Other)
  Sender: FDA-Public Use
  Company Number: JP-PFIZER INC-2019370961

PATIENT
  Age: 49 Year
  Sex: Female

DRUGS (2)
  1. MECOBALAMIN [Concomitant]
     Active Substance: METHYLCOBALAMIN
     Indication: HYPOAESTHESIA
     Dosage: 1500 UG, DAILY
     Route: 048
  2. PREGABALIN. [Suspect]
     Active Substance: PREGABALIN
     Indication: NEURALGIA
     Dosage: 50 MG, DAILY
     Route: 048
     Dates: end: 201805

REACTIONS (5)
  - Retinopathy [Recovering/Resolving]
  - Visual impairment [Recovering/Resolving]
  - Photophobia [Recovering/Resolving]
  - Retinogram abnormal [Recovering/Resolving]
  - Night blindness [Recovering/Resolving]
